FAERS Safety Report 5481367-2 (Version None)
Quarter: 2007Q4

REPORT INFORMATION
  Report Type: 
  Country: None (occurrence: None)
  Receive Date: 20071010
  Receipt Date: 20071001
  Transmission Date: 20080405
  Serious: Yes (Other)
  Sender: FDA-Public Use
  Company Number: ES-AVENTIS-200714656EU

PATIENT
  Age: 86 Year
  Sex: Female

DRUGS (3)
  1. SEGURIL                            /00032601/ [Suspect]
     Indication: DRUG USE FOR UNKNOWN INDICATION
     Route: 048
     Dates: start: 20070625
  2. ALPRAZOLAM NORMON [Suspect]
     Indication: ANXIETY
     Route: 048
     Dates: start: 20070410
  3. ANAGASTRA [Suspect]
     Indication: DRUG USE FOR UNKNOWN INDICATION
     Route: 048
     Dates: start: 20070611

REACTIONS (1)
  - PARANOIA [None]
